FAERS Safety Report 24611556 (Version 2)
Quarter: 2024Q4

REPORT INFORMATION
  Report Type: Spontaneous
  Country: JP (occurrence: JP)
  Receive Date: 20241113
  Receipt Date: 20241126
  Transmission Date: 20250115
  Serious: Yes (Hospitalization)
  Sender: EMD SERONO INC
  Company Number: JP-Merck Healthcare KGaA-2024059272

PATIENT
  Age: 65 Year
  Sex: Male

DRUGS (6)
  1. METGLUCO [Suspect]
     Active Substance: METFORMIN HYDROCHLORIDE
     Indication: Type 2 diabetes mellitus
     Dates: start: 2009, end: 202111
  2. VOGLIBOSE [Suspect]
     Active Substance: VOGLIBOSE
     Indication: Product used for unknown indication
     Dates: end: 202111
  3. MITIGLINIDE [Suspect]
     Active Substance: MITIGLINIDE
     Indication: Product used for unknown indication
     Dates: end: 202111
  4. ACTOS [Suspect]
     Active Substance: PIOGLITAZONE HYDROCHLORIDE
     Indication: Product used for unknown indication
     Dates: end: 202111
  5. DULAGLUTIDE [Suspect]
     Active Substance: DULAGLUTIDE
     Indication: Product used for unknown indication
     Dates: end: 202111
  6. VILDAGLIPTIN [Suspect]
     Active Substance: VILDAGLIPTIN
     Indication: Product used for unknown indication

REACTIONS (5)
  - Monoplegia [Recovered/Resolved]
  - Transient ischaemic attack [Recovered/Resolved]
  - Hypoglycaemia [Recovered/Resolved]
  - Glycosylated haemoglobin increased [Unknown]
  - Treatment noncompliance [Unknown]

NARRATIVE: CASE EVENT DATE: 20090101
